FAERS Safety Report 5864167-0 (Version None)
Quarter: 2008Q3

REPORT INFORMATION
  Report Type: 
  Country: None (occurrence: None)
  Receive Date: 20080829
  Receipt Date: 20080827
  Transmission Date: 20090109
  Serious: Yes (Hospitalization)
  Sender: FDA-Public Use
  Company Number: US-BRISTOL-MYERS SQUIBB COMPANY-14315980

PATIENT
  Age: 53 Year
  Sex: Male
  Weight: 86 kg

DRUGS (3)
  1. ERBITUX [Suspect]
     Indication: HEAD AND NECK CANCER
     Dosage: THERAPY START DATE 14JUL08. 11AUG08 TREATMENT WAS NOT GIVEN DUE TO HOSPITALIZATION.
     Dates: start: 20080804, end: 20080804
  2. CISPLATIN [Suspect]
     Indication: HEAD AND NECK CANCER
     Dosage: ON 11AUG08 DAY 22 CISPLATIN OMITTED.
     Dates: start: 20080721, end: 20080721
  3. RADIATION THERAPY [Suspect]
     Indication: HEAD AND NECK CANCER
     Dosage: 4600DF=4600CGY.STARTED 21JUL08.LAST GIVEN 15AUG08.NO. OF FRACTIONS 23. NO. OF ELASPSED DAYS 26.

REACTIONS (2)
  - INFECTION [None]
  - PYREXIA [None]
